APPROVED DRUG PRODUCT: KETOPROFEN
Active Ingredient: KETOPROFEN
Strength: 12.5MG
Dosage Form/Route: TABLET;ORAL
Application: A075364 | Product #001
Applicant: L PERRIGO CO
Approved: Feb 7, 2002 | RLD: No | RS: No | Type: DISCN